FAERS Safety Report 12571804 (Version 2)
Quarter: 2016Q3

REPORT INFORMATION
  Report Type: Spontaneous
  Country: SE (occurrence: SE)
  Receive Date: 20160719
  Receipt Date: 20160908
  Transmission Date: 20161109
  Serious: Yes (Hospitalization, Congenital Anomaly)
  Sender: FDA-Public Use
  Company Number: SE-BIOGEN-2016BI00265645

PATIENT
  Sex: Male

DRUGS (1)
  1. TYSABRI [Suspect]
     Active Substance: NATALIZUMAB
     Indication: EXPOSURE VIA FATHER
     Route: 064
     Dates: start: 200608, end: 2014

REACTIONS (4)
  - Exposure via father [Not Recovered/Not Resolved]
  - Kidney duplex [Not Recovered/Not Resolved]
  - Vesicoureteric reflux [Not Recovered/Not Resolved]
  - Asthma [Unknown]

NARRATIVE: CASE EVENT DATE: 201205
